FAERS Safety Report 6470325-7 (Version None)
Quarter: 2009Q4

REPORT INFORMATION
  Report Type: 
  Country: None (occurrence: None)
  Receive Date: 20091203
  Receipt Date: 20091126
  Transmission Date: 20100525
  Serious: Yes (Hospitalization)
  Sender: FDA-Public Use
  Company Number: DE-MERCK-0911DEU00088

PATIENT
  Age: 61 Year
  Sex: Female

DRUGS (4)
  1. JANUMET [Suspect]
     Indication: TYPE 2 DIABETES MELLITUS
     Route: 048
     Dates: start: 20090101, end: 20091124
  2. RASILEZ [Concomitant]
     Route: 065
  3. DECORTIN [Concomitant]
     Route: 065
  4. BISOPROLOL [Concomitant]
     Route: 065

REACTIONS (1)
  - THROMBOCYTOPENIA [None]
